FAERS Safety Report 13542068 (Version 2)
Quarter: 2019Q1

REPORT INFORMATION
  Report Type: Spontaneous
  Country: US (occurrence: US)
  Receive Date: 20170512
  Receipt Date: 20190128
  Transmission Date: 20190417
  Serious: No
  Sender: FDA-Public Use
  Company Number: US-ACTELION-A-US2017-153735

PATIENT
  Age: 75 Year
  Sex: Female

DRUGS (1)
  1. TRACLEER [Suspect]
     Active Substance: BOSENTAN
     Indication: PULMONARY ARTERIAL HYPERTENSION
     Dosage: 125 MG, BID
     Route: 048
     Dates: start: 20100716

REACTIONS (4)
  - Essential tremor [Unknown]
  - Coccydynia [Not Recovered/Not Resolved]
  - Fractured coccyx [Unknown]
  - Epidural anaesthesia [Unknown]

NARRATIVE: CASE EVENT DATE: 2016
